FAERS Safety Report 6138057-2 (Version None)
Quarter: 2009Q1

REPORT INFORMATION
  Report Type: 
  Country: None (occurrence: None)
  Receive Date: 20090327
  Receipt Date: 20090327
  Transmission Date: 20090719
  Serious: Yes (Other)
  Sender: FDA-Public Use
  Company Number: None

PATIENT
  Age: 46 Year
  Sex: Female
  Weight: 68.0396 kg

DRUGS (1)
  1. ALDARA [Suspect]
     Indication: BASAL CELL CARCINOMA
     Dosage: ONE ^DAB^ TO 5 AREAS OF SKIN DAILY TOP
     Route: 061
     Dates: start: 20080805, end: 20080819

REACTIONS (4)
  - EYE PAIN [None]
  - INFLAMMATION [None]
  - LYMPHADENOPATHY [None]
  - MUSCULOSKELETAL PAIN [None]
